FAERS Safety Report 10177154 (Version 4)
Quarter: 2014Q3

REPORT INFORMATION
  Report Type: Spontaneous
  Country: FR (occurrence: None)
  Receive Date: 20140514
  Receipt Date: 20140716
  Transmission Date: 20150326
  Serious: Yes (Death)
  Sender: FDA-Public Use
  Company Number: FK201401711

PATIENT
  Age: 39 Year
  Sex: Female

DRUGS (9)
  1. MIDAZOLAM [Suspect]
     Active Substance: MIDAZOLAM\MIDAZOLAM HYDROCHLORIDE
     Indication: INDUCTION AND MAINTENANCE OF ANAESTHESIA
     Dosage: 2 MG, 50MG/5ML, INTRAVENOUS (NOT OTHERWISE SPECIFIED)
     Route: 042
     Dates: start: 20140423, end: 20140423
  2. SUXAMETHONIUM [Suspect]
     Active Substance: SUCCINYLCHOLINE
     Indication: INDUCTION AND MAINTENANCE OF ANAESTHESIA
     Dosage: 70 MG, INTRAVENOUS (NOT OTHERWISE SPECIFIED)?
     Route: 042
     Dates: start: 20140423, end: 20140423
  3. KETAMINE [Suspect]
     Active Substance: KETAMINE
     Indication: INDUCTION AND MAINTENANCE OF ANAESTHESIA
     Dosage: 20 MG, 1 IN 1 D, INTRAVENOUS (NOT OTHERWISE SPECIFIED)?
     Route: 042
     Dates: start: 20140423, end: 20140423
  4. RANITIDINE ARROW (RANITIDINE HYDROCHLORIDE) (RANITIDINE HYDROCHLORIDE)? [Concomitant]
  5. SEVORANE [Suspect]
     Active Substance: SEVOFLURANE
     Indication: INDUCTION AND MAINTENANCE OF ANAESTHESIA
     Dosage: 250 ML, 1 IN 1 D, INTRAVENOUS (NOT OTHERWISE SPECIFIED)?
     Route: 042
     Dates: start: 20140423, end: 20140423
  6. ALPRAZOLAM ALTER (ALPRAZOLAM) (ALPRAZOLAM) [Concomitant]
  7. SUFENTANIL MYLAN [Suspect]
     Active Substance: SUFENTANIL
     Indication: INDUCTION AND MAINTENANCE OF ANAESTHESIA
     Dosage: 25 UG, 1 IN 1 D, INTRAVENOUS (NOT OTHERWISE SPECIFIED)?
     Route: 042
     Dates: start: 20140423, end: 20140423
  8. PROPOFOL FRESENIUS (NOT SPECIFIED) (PROPOFOL) (PROPOFOL) [Suspect]
     Active Substance: PROPOFOL
     Indication: INDUCTION OF ANAESTHESIA
     Dosage: 200 MG, 1 IN 1 D,  INTRAVNEOUS (NOT OTHERWISE SPECIFIED)?
     Route: 042
     Dates: start: 20140423, end: 20140423
  9. LEVOTHYROX (LEVOTHYROXINE SODIUIM) (LEVOTHYROXINE SODIUM) [Concomitant]

REACTIONS (6)
  - Blood pressure decreased [None]
  - Cardiac arrest [None]
  - Hypercapnia [None]
  - Hyperthermia malignant [None]
  - Ventricular tachycardia [None]
  - Cyanosis [None]

NARRATIVE: CASE EVENT DATE: 20130423
